FAERS Safety Report 11043078 (Version 3)
Quarter: 2015Q3

REPORT INFORMATION
  Report Type: Spontaneous
  Country: JP (occurrence: JP)
  Receive Date: 20150417
  Receipt Date: 20150817
  Transmission Date: 20151125
  Serious: Yes (Hospitalization, Other)
  Sender: FDA-Public Use
  Company Number: JP-OTSUKA-JP-2015-12127

PATIENT

DRUGS (12)
  1. TAKEPRON [Concomitant]
     Active Substance: LANSOPRAZOLE
     Indication: PRODUCT USED FOR UNKNOWN INDICATION
     Dosage: 30 MG/DAY
     Route: 048
     Dates: end: 20150317
  2. SAMSCA [Suspect]
     Active Substance: TOLVAPTAN
     Dosage: 3.75 MG/DAY
     Route: 048
     Dates: start: 20150428, end: 20150611
  3. AMINOLEBAN EN POWDER [Concomitant]
     Active Substance: AMINO ACIDS
     Indication: PRODUCT USED FOR UNKNOWN INDICATION
     Dosage: 100 G/DAY
     Route: 048
  4. MAGMITT [Concomitant]
     Active Substance: MAGNESIUM OXIDE
     Indication: PRODUCT USED FOR UNKNOWN INDICATION
     Dosage: 750 MG/DAY
     Route: 048
  5. URSO S [Concomitant]
     Indication: PRODUCT USED FOR UNKNOWN INDICATION
     Dosage: 600 MG/DAY
     Route: 048
  6. ALDACTONE-A [Concomitant]
     Active Substance: SPIRONOLACTONE
     Indication: PRODUCT USED FOR UNKNOWN INDICATION
     Dosage: 50 MG/DAY
     Route: 048
  7. LAGNOS [Concomitant]
     Indication: PRODUCT USED FOR UNKNOWN INDICATION
     Dosage: 3 DF/DAY
     Route: 048
  8. SAMSCA [Suspect]
     Active Substance: TOLVAPTAN
     Indication: OEDEMA DUE TO HEPATIC DISEASE
     Dosage: 3.75 MG/DAY
     Route: 048
     Dates: start: 20150225, end: 20150301
  9. SAMSCA [Suspect]
     Active Substance: TOLVAPTAN
     Dosage: 7.5 MG/DAY
     Route: 048
     Dates: start: 20150302, end: 20150324
  10. SAMSCA [Suspect]
     Active Substance: TOLVAPTAN
     Dosage: 3.75 MG/DAY
     Route: 048
     Dates: start: 20150325, end: 20150330
  11. LASIX M [Concomitant]
     Active Substance: FUROSEMIDE
     Indication: PRODUCT USED FOR UNKNOWN INDICATION
     Dosage: 80 MG/DAY
     Route: 048
  12. INDERAL [Concomitant]
     Active Substance: PROPRANOLOL HYDROCHLORIDE
     Indication: PRODUCT USED FOR UNKNOWN INDICATION
     Dosage: 30 MG/DAY
     Route: 048

REACTIONS (1)
  - Hepatic encephalopathy [Recovered/Resolved]

NARRATIVE: CASE EVENT DATE: 20150314
